FAERS Safety Report 24985866 (Version 2)
Quarter: 2025Q3

REPORT INFORMATION
  Report Type: Report from Study
  Country: US (occurrence: None)
  Receive Date: 20250219
  Receipt Date: 20250810
  Transmission Date: 20251021
  Serious: No
  Sender: ALEXION PHARMACEUTICALS
  Company Number: US-AstraZeneca-2014SE74613

PATIENT
  Sex: Male
  Weight: 68.039 kg

DRUGS (8)
  1. SYMBICORT [Suspect]
     Active Substance: BUDESONIDE\FORMOTEROL FUMARATE DIHYDRATE
     Indication: Dyspnoea
     Dosage: 160 MCG/4.5 MCG, 2 PUFFS, TWO TIMES A DAY
     Dates: start: 2005
  2. OMEPRAZOLE [Suspect]
     Active Substance: OMEPRAZOLE
     Dosage: 40 MILLIGRAM, QD
  3. NEXIUM [Suspect]
     Active Substance: ESOMEPRAZOLE MAGNESIUM
     Indication: Abdominal discomfort
  4. CALCIUM CITRATE [Concomitant]
     Active Substance: CALCIUM CITRATE
     Indication: Limb discomfort
     Dosage: 2 DOSAGE FORM, QD
  5. VITAMINS [Concomitant]
     Active Substance: VITAMINS
     Indication: Visual impairment
     Dosage: UNK UNK, QD
  6. BENAZEPRIL [Concomitant]
     Active Substance: BENAZEPRIL HYDROCHLORIDE
     Indication: Abdominal discomfort
     Dosage: 10 MILLIGRAM, QD
  7. DOXAZOSIN [Concomitant]
     Active Substance: DOXAZOSIN MESYLATE
     Indication: Prostatic disorder
  8. VENTOLIN HFA [Concomitant]
     Active Substance: ALBUTEROL SULFATE
     Indication: Product used for unknown indication

REACTIONS (6)
  - Arthralgia [Not Recovered/Not Resolved]
  - Memory impairment [Not Recovered/Not Resolved]
  - Body height decreased [Not Recovered/Not Resolved]
  - Weight increased [Unknown]
  - Hypoacusis [Not Recovered/Not Resolved]
  - Abdominal discomfort [Not Recovered/Not Resolved]
